FAERS Safety Report 9499123 (Version 4)
Quarter: 2014Q1

REPORT INFORMATION
  Report Type: Spontaneous
  Country: US (occurrence: US)
  Receive Date: 20130904
  Receipt Date: 20140305
  Transmission Date: 20141002
  Serious: Yes (Hospitalization, Other)
  Sender: FDA-Public Use
  Company Number: US-ELI_LILLY_AND_COMPANY-US201308007754

PATIENT
  Age: 71 Year
  Sex: Male
  Weight: 68.03 kg

DRUGS (4)
  1. AXIRON [Suspect]
     Indication: BLOOD TESTOSTERONE DECREASED
     Dosage: 60MG, DAILY
     Dates: start: 2011
  2. CRESTOR [Concomitant]
  3. ASPIRIN [Concomitant]
     Dosage: 81MG, UNK
  4. VIAGRA [Concomitant]
     Dosage: 100MG, AS NEEDED

REACTIONS (12)
  - Fall [Recovered/Resolved]
  - Wound [Recovered/Resolved]
  - Drug hypersensitivity [Recovered/Resolved]
  - Haemorrhage urinary tract [Unknown]
  - Blood testosterone decreased [Unknown]
  - Fatigue [Unknown]
  - Impaired healing [Recovered/Resolved]
  - Dermal absorption impaired [Unknown]
  - Drug dose omission [Unknown]
  - Feeling hot [Recovered/Resolved]
  - Erythema [Recovered/Resolved]
  - Abdominal discomfort [Recovered/Resolved]
